FAERS Safety Report 13899906 (Version 2)
Quarter: 2017Q3

REPORT INFORMATION
  Report Type: Spontaneous
  Country: US (occurrence: US)
  Receive Date: 20170824
  Receipt Date: 20170906
  Transmission Date: 20171127
  Serious: Yes (Other)
  Sender: FDA-Public Use
  Company Number: US-PFIZER INC-2017363477

PATIENT
  Age: 67 Year
  Sex: Male

DRUGS (2)
  1. CAPECITABINE. [Suspect]
     Active Substance: CAPECITABINE
     Indication: URETHRAL CANCER
     Dosage: 1000 MG, 2X/DAY, DOSE-REDUCED CAPECITABINE 1000 MG BY MOUTH TWICE DAILY
     Route: 048
  2. OXALIPLATIN. [Suspect]
     Active Substance: OXALIPLATIN
     Indication: URETHRAL CANCER
     Dosage: EVERY 3 WEEKS
     Route: 042

REACTIONS (3)
  - Neuropathy peripheral [Unknown]
  - Performance status decreased [Unknown]
  - Neutropenia [Unknown]
